FAERS Safety Report 5124902-6 (Version None)
Quarter: 2006Q4

REPORT INFORMATION
  Report Type: 
  Country: None (occurrence: None)
  Receive Date: 20061005
  Receipt Date: 20060901
  Transmission Date: 20070319
  Serious: Yes (Other)
  Sender: FDA-Public Use
  Company Number: CHNY2006CA02675

PATIENT
  Age: 16 Year
  Sex: Female
  Weight: 4939 kg

DRUGS (1)
  1. BUCKLEY'S MIXTURE (NCH) (AMMONIUM CARBONATE, POTASSIUM BICARBONATE, ME [Suspect]
     Indication: PRODUCTIVE COUGH
     Dosage: 2 TEASPOONS ONCE A DAY, ORAL
     Route: 048
     Dates: start: 20060801, end: 20060901

REACTIONS (3)
  - FALL [None]
  - HEAD INJURY [None]
  - LOSS OF CONSCIOUSNESS [None]
